FAERS Safety Report 5569990-8 (Version None)
Quarter: 2007Q4

REPORT INFORMATION
  Report Type: 
  Country: None (occurrence: None)
  Receive Date: 20071220
  Receipt Date: 20071210
  Transmission Date: 20080405
  Serious: Yes (Hospitalization)
  Sender: FDA-Public Use
  Company Number: JP-PFIZER INC-2007092958

PATIENT
  Sex: Female

DRUGS (9)
  1. MIGLITOL TABLET [Suspect]
     Indication: DIABETES MELLITUS
     Dosage: DAILY DOSE:150MG
     Route: 048
     Dates: start: 20070926, end: 20071023
  2. MELBIN [Concomitant]
     Route: 048
  3. HUMALOG [Concomitant]
     Route: 058
     Dates: start: 20060601
  4. INSULIN INJECTION, BIPHASIC [Concomitant]
     Route: 058
     Dates: start: 20060601
  5. INDERAL [Concomitant]
     Route: 048
     Dates: start: 20070301
  6. BUFFERIN [Concomitant]
     Route: 048
  7. MEVALOTIN [Concomitant]
     Route: 048
     Dates: start: 20070404
  8. FAMOTIDINE [Concomitant]
     Route: 048
     Dates: start: 20070404
  9. MUCOSTA [Concomitant]
     Route: 048
     Dates: start: 20070404

REACTIONS (1)
  - HEPATIC FUNCTION ABNORMAL [None]
